FAERS Safety Report 26129960 (Version 1)
Quarter: 2025Q4

REPORT INFORMATION
  Report Type: Other
  Country: EU (occurrence: EU)
  Receive Date: 20251208
  Receipt Date: 20251208
  Transmission Date: 20260117
  Serious: Yes (Hospitalization)
  Sender: ZYDUS PHARM
  Company Number: None

PATIENT

DRUGS (1)
  1. BACLOFEN [Suspect]
     Active Substance: BACLOFEN
     Indication: Hemiplegia
     Dosage: 50 MILLIGRAM
     Route: 048
     Dates: start: 20251009, end: 20251009

REACTIONS (3)
  - Altered state of consciousness [Recovered/Resolved]
  - Seizure [Recovered/Resolved]
  - Incorrect dose administered [Recovered/Resolved]

NARRATIVE: CASE EVENT DATE: 20251009
